FAERS Safety Report 5568212-1 (Version None)
Quarter: 2007Q4

REPORT INFORMATION
  Report Type: 
  Country: None (occurrence: None)
  Receive Date: 20071218
  Receipt Date: 20071207
  Transmission Date: 20080405
  Serious: Yes (Hospitalization)
  Sender: FDA-Public Use
  Company Number: 2007BI026031

PATIENT
  Age: 44 Year
  Sex: Female

DRUGS (1)
  1. AVONEX [Suspect]
     Indication: MULTIPLE SCLEROSIS
     Dosage: 30 UG QW IM
     Route: 030
     Dates: start: 20051001, end: 20071128

REACTIONS (5)
  - BALANCE DISORDER [None]
  - BURNING SENSATION [None]
  - MUSCLE CONTRACTIONS INVOLUNTARY [None]
  - PRURITUS [None]
  - VOMITING [None]
